FAERS Safety Report 19661246 (Version 1)
Quarter: 2021Q3

REPORT INFORMATION
  Report Type: Spontaneous
  Country: US (occurrence: US)
  Receive Date: 20210805
  Receipt Date: 20210805
  Transmission Date: 20211014
  Serious: Yes (Other)
  Sender: FDA-Public Use
  Company Number: None

PATIENT
  Age: 25 Year
  Sex: Male
  Weight: 59.4 kg

DRUGS (2)
  1. TRIAMCINOLONE CREAM [Suspect]
     Active Substance: TRIAMCINOLONE
     Indication: ECZEMA
  2. PROTOPIC [Suspect]
     Active Substance: TACROLIMUS

REACTIONS (9)
  - Disability [None]
  - Eczema [None]
  - Swelling [None]
  - Pruritus [None]
  - Skin disorder [None]
  - Skin exfoliation [None]
  - Steroid withdrawal syndrome [None]
  - Skin weeping [None]
  - Insomnia [None]

NARRATIVE: CASE EVENT DATE: 20201201
